FAERS Safety Report 7503210-X (Version None)
Quarter: 2011Q2

REPORT INFORMATION
  Report Type: 
  Country: None (occurrence: None)
  Receive Date: 20110525
  Receipt Date: 20110519
  Transmission Date: 20111010
  Serious: Yes (Death)
  Sender: FDA-Public Use
  Company Number: BE-SANOFI-AVENTIS-2011SA025560

PATIENT
  Age: 66 Year
  Sex: Male
  Weight: 81 kg

DRUGS (15)
  1. DILTIAZEM HCL [Concomitant]
     Indication: ATRIAL FIBRILLATION
     Dates: start: 20110401
  2. DIURETICS [Concomitant]
  3. ALDACTONE [Concomitant]
  4. DOCETAXEL [Suspect]
     Route: 041
     Dates: start: 20110426, end: 20110426
  5. DOCETAXEL [Suspect]
     Route: 041
     Dates: start: 20110426, end: 20110426
  6. AVELOX [Concomitant]
     Dates: start: 20110418
  7. EMEND [Concomitant]
  8. NOVABAN [Concomitant]
     Dosage: NOVABAN 5 MG + 50 ML SODIUM CHLORIDE 0.9%
  9. BUMETANIDE [Concomitant]
  10. CORDARONE [Concomitant]
     Indication: ATRIAL FIBRILLATION
     Route: 042
     Dates: start: 20110401
  11. DOCETAXEL [Suspect]
     Route: 041
     Dates: start: 20110426, end: 20110426
  12. LANOXIN [Concomitant]
     Indication: ATRIAL FIBRILLATION
  13. SOLU-MEDROL [Concomitant]
  14. CISPLATIN [Concomitant]
     Route: 065
     Dates: start: 20110426, end: 20110426
  15. OSMOTAN [Concomitant]
     Dosage: GLUCOSE 5% + SODIUM CHLORIDE 0.9% 1000 ML + 20 MEQ POTASSIUM CHLORIDE

REACTIONS (1)
  - CARDIAC ARREST [None]
